FAERS Safety Report 20710836 (Version 9)
Quarter: 2023Q4

REPORT INFORMATION
  Report Type: Spontaneous
  Country: US (occurrence: US)
  Receive Date: 20220414
  Receipt Date: 20231229
  Transmission Date: 20240110
  Serious: Yes (Other)
  Sender: FDA-Public Use
  Company Number: US-PFIZER INC-2020383055

PATIENT
  Age: 79 Year
  Sex: Female
  Weight: 106.59 kg

DRUGS (1)
  1. ESTRING [Suspect]
     Active Substance: ESTRADIOL
     Indication: Vulvovaginal discomfort
     Dosage: 1 DF, EVERY 3 MONTHS (EVERY 90 DAYS)
     Route: 067

REACTIONS (10)
  - Macular degeneration [Unknown]
  - Visual acuity reduced [Unknown]
  - Body height decreased [Unknown]
  - Weight increased [Unknown]
  - Hypersensitivity [Unknown]
  - Hypoacusis [Unknown]
  - Emotional disorder [Unknown]
  - Confusional state [Unknown]
  - Arthritis [Unknown]
  - Contraindicated product prescribed [Unknown]
